FAERS Safety Report 7531046-2 (Version None)
Quarter: 2011Q2

REPORT INFORMATION
  Report Type: 
  Country: None (occurrence: None)
  Receive Date: 20110531
  Receipt Date: 20110516
  Transmission Date: 20111010
  Serious: Yes (Life-Threatening, Hospitalization, Other)
  Sender: FDA-Public Use
  Company Number: 2011MA005957

PATIENT
  Age: 2 Month
  Sex: Female
  Weight: 4.7 kg

DRUGS (1)
  1. FEVERALL [Suspect]
     Indication: PYREXIA
     Dosage: 1500 MG

REACTIONS (3)
  - GRAND MAL CONVULSION [None]
  - ACCIDENTAL OVERDOSE [None]
  - HYPONATRAEMIA [None]
